FAERS Safety Report 10241237 (Version 1)
Quarter: 2014Q2

REPORT INFORMATION
  Report Type: Spontaneous
  Country: US (occurrence: None)
  Receive Date: 20140613
  Receipt Date: 20140613
  Transmission Date: 20141212
  Serious: Yes (Other)
  Sender: FDA-Public Use
  Company Number: 2014P1004047

PATIENT
  Age: 25 Year
  Sex: Female

DRUGS (2)
  1. MYORISAN [Suspect]
     Indication: ACNE
     Route: 048
     Dates: start: 20140408, end: 20140408
  2. KELNOR 1/35 [Concomitant]

REACTIONS (7)
  - Rash macular [None]
  - Eye swelling [None]
  - Vomiting [None]
  - Swelling face [None]
  - Lip swelling [None]
  - Rash generalised [None]
  - Nausea [None]
